FAERS Safety Report 25073320 (Version 1)
Quarter: 2025Q1

REPORT INFORMATION
  Report Type: Spontaneous
  Country: IN (occurrence: IN)
  Receive Date: 20250313
  Receipt Date: 20250313
  Transmission Date: 20250408
  Serious: Yes (Other)
  Sender: WOCKHARDT LIMITED
  Company Number: IN-WOCKHARDT LIMITED-2025WLD000026

PATIENT
  Age: 66 Year
  Sex: Female

DRUGS (1)
  1. CEFTRIAXONE [Suspect]
     Active Substance: CEFTRIAXONE
     Indication: Product used for unknown indication
     Route: 042

REACTIONS (1)
  - Generalised bullous fixed drug eruption [Recovering/Resolving]
